FAERS Safety Report 9127851 (Version 7)
Quarter: 2014Q2

REPORT INFORMATION
  Report Type: Spontaneous
  Country: US (occurrence: US)
  Receive Date: 20130228
  Receipt Date: 20140619
  Transmission Date: 20141212
  Serious: Yes (Hospitalization)
  Sender: FDA-Public Use
  Company Number: US-GLAXOSMITHKLINE-A1005099A

PATIENT
  Age: 63 Year
  Sex: Female

DRUGS (3)
  1. LAMICTAL [Suspect]
     Indication: MULTIPLE SCLEROSIS
     Dosage: 150MG UNKNOWN
     Route: 065
     Dates: start: 20030903
  2. LYRICA [Concomitant]
  3. DIABETES MEDICATION [Concomitant]

REACTIONS (9)
  - Adverse drug reaction [Unknown]
  - Drug dose omission [Unknown]
  - Investigation [Unknown]
  - Pain [Unknown]
  - Migraine [Unknown]
  - Malaise [Unknown]
  - Asthenia [Unknown]
  - Multiple sclerosis [Unknown]
  - Convulsion [Unknown]
